FAERS Safety Report 15239407 (Version 3)
Quarter: 2021Q4

REPORT INFORMATION
  Report Type: Spontaneous
  Country: JP (occurrence: JP)
  Receive Date: 20180803
  Receipt Date: 20211213
  Transmission Date: 20220303
  Serious: Yes (Other)
  Sender: FDA-Public Use
  Company Number: FR-PFM-2018-06128

PATIENT
  Age: 2 Month
  Sex: Female
  Weight: 6 kg

DRUGS (7)
  1. PROPRANOLOL HYDROCHLORIDE [Suspect]
     Active Substance: PROPRANOLOL HYDROCHLORIDE
     Indication: Infantile haemangioma
     Dosage: 1 MG/KG (0.5 MG/KG/12 HOURS)
     Route: 048
     Dates: start: 20171201, end: 20171206
  2. PROPRANOLOL HYDROCHLORIDE [Suspect]
     Active Substance: PROPRANOLOL HYDROCHLORIDE
     Dosage: 2 MG/KG (1 MG/KG /12 HOURS)
     Route: 048
     Dates: start: 20171207, end: 20171208
  3. PROPRANOLOL HYDROCHLORIDE [Suspect]
     Active Substance: PROPRANOLOL HYDROCHLORIDE
     Dosage: 1 MG/KG (0.5 MG/KG / 12 HOURS)
     Route: 048
     Dates: start: 20171209, end: 20171212
  4. PROPRANOLOL HYDROCHLORIDE [Suspect]
     Active Substance: PROPRANOLOL HYDROCHLORIDE
     Dosage: UNK
     Route: 048
     Dates: start: 20171213, end: 20180308
  5. PROPRANOLOL HYDROCHLORIDE [Suspect]
     Active Substance: PROPRANOLOL HYDROCHLORIDE
     Dosage: 2.4 MG/KG (1.2 MG/KG/ 12 HOURS)
     Route: 048
     Dates: start: 20180309
  6. Incremin [Concomitant]
     Indication: Anaemia
     Dosage: 2 ML, UNK
     Route: 048
     Dates: start: 20170927, end: 20180502
  7. ALFAROL [Concomitant]
     Active Substance: ALFACALCIDOL
     Indication: Rickets
     Dosage: 0.03 ?G, UNK
     Route: 048
     Dates: start: 20170927, end: 20180502

REACTIONS (4)
  - Apnoeic attack [Recovered/Resolved]
  - Cyanosis [Unknown]
  - Vomiting [Unknown]
  - Contraindicated product administered [Unknown]

NARRATIVE: CASE EVENT DATE: 20171208
